FAERS Safety Report 9781816 (Version 1)
Quarter: 2013Q4

REPORT INFORMATION
  Report Type: Report from Study
  Country: MX (occurrence: MX)
  Receive Date: 20131225
  Receipt Date: 20131225
  Transmission Date: 20140711
  Serious: Yes (Other)
  Sender: FDA-Public Use
  Company Number: MX-ROCHE-1325292

PATIENT
  Age: 55 Year
  Sex: Female

DRUGS (2)
  1. RANIBIZUMAB [Suspect]
     Indication: VISUAL IMPAIRMENT
     Dosage: DOSE: 0.5 MG/0.05 ML
     Route: 050
     Dates: start: 201210
  2. CIPROFLOXACIN [Concomitant]
     Route: 065
     Dates: start: 201210

REACTIONS (2)
  - Nephrolithiasis [Not Recovered/Not Resolved]
  - Body temperature increased [Not Recovered/Not Resolved]
